FAERS Safety Report 12250034 (Version 1)
Quarter: 2016Q2

REPORT INFORMATION
  Report Type: Report from Study
  Country: GB (occurrence: GB)
  Receive Date: 20160408
  Receipt Date: 20160408
  Transmission Date: 20160815
  Serious: Yes (Death, Hospitalization)
  Sender: FDA-Public Use
  Company Number: GB-ABBVIE-16K-167-1598485-00

PATIENT
  Age: 59 Year
  Sex: Male

DRUGS (2)
  1. HUMIRA [Suspect]
     Active Substance: ADALIMUMAB
     Indication: RHEUMATOID ARTHRITIS
     Route: 058
     Dates: start: 20040121, end: 20120115
  2. AZATHIOPRINE. [Concomitant]
     Active Substance: AZATHIOPRINE
     Indication: PRODUCT USED FOR UNKNOWN INDICATION

REACTIONS (12)
  - Inflammatory marker increased [Unknown]
  - Acute kidney injury [Unknown]
  - General physical health deterioration [Unknown]
  - Sepsis [Fatal]
  - Fall [Unknown]
  - Lung consolidation [Unknown]
  - Dyspnoea [Unknown]
  - Pneumonia [Unknown]
  - Somnolence [Unknown]
  - Liver function test abnormal [Unknown]
  - Pulmonary sepsis [Unknown]
  - Confusional state [Unknown]

NARRATIVE: CASE EVENT DATE: 20160129
